FAERS Safety Report 15992023 (Version 3)
Quarter: 2020Q4

REPORT INFORMATION
  Report Type: Spontaneous
  Country: GB (occurrence: GB)
  Receive Date: 20190221
  Receipt Date: 20201119
  Transmission Date: 20210113
  Serious: Yes (Life-Threatening, Hospitalization, Other)
  Sender: FDA-Public Use
  Company Number: GB-ASTRAZENECA-2019SE28586

PATIENT
  Age: 56 Year
  Sex: Female

DRUGS (26)
  1. LEVOTHYROXINE SODIUM. [Concomitant]
     Active Substance: LEVOTHYROXINE SODIUM
     Dosage: 100.0UG/INHAL UNKNOWN
  2. CHLORPHENAMINE [Concomitant]
     Active Substance: CHLORPHENIRAMINE MALEATE
     Dosage: 4.0MG UNKNOWN
  3. NYSTATIN. [Concomitant]
     Active Substance: NYSTATIN
     Dosage: 100,000UNITS/ML
     Dates: start: 20190120, end: 20190127
  4. LEVOFLOXACIN. [Suspect]
     Active Substance: LEVOFLOXACIN
     Route: 065
     Dates: start: 20190116
  5. LEVOTHYROXINE SODIUM. [Concomitant]
     Active Substance: LEVOTHYROXINE SODIUM
     Dosage: 50.0UG/INHAL UNKNOWN
  6. ADIZEM- XL [Concomitant]
  7. GABAPENTIN. [Concomitant]
     Active Substance: GABAPENTIN
     Dosage: 300.0MG UNKNOWN
  8. OMEPRAZOLE. [Suspect]
     Active Substance: OMEPRAZOLE
     Route: 048
  9. METRONIDAZOLE. [Suspect]
     Active Substance: METRONIDAZOLE
     Dosage: 500MG/100ML INFUSION 100ML BAGS
     Route: 065
     Dates: start: 20190128, end: 20190130
  10. VANCOMYCIN [Concomitant]
     Active Substance: VANCOMYCIN
     Dates: start: 20190130
  11. PARACETAMOL [Concomitant]
     Active Substance: ACETAMINOPHEN
     Dosage: 500.0MG UNKNOWN
  12. FOLIC ACID. [Concomitant]
     Active Substance: FOLIC ACID
     Dosage: 5.0MG UNKNOWN
  13. CASPOFUNGIN [Concomitant]
     Active Substance: CASPOFUNGIN
     Dates: end: 20181102
  14. CYCLIZINE [Concomitant]
     Active Substance: CYCLIZINE
     Dosage: 50.0MG UNKNOWN
  15. METOCLOPRAMIDE. [Suspect]
     Active Substance: METOCLOPRAMIDE
     Dosage: 10.0MG ONCE/SINGLE ADMINISTRATION
     Route: 065
  16. VANCOMYCIN [Concomitant]
     Active Substance: VANCOMYCIN
     Route: 065
     Dates: start: 20190130
  17. TINZAPARIN SODIUM [Concomitant]
     Active Substance: TINZAPARIN SODIUM
     Dosage: ,500UNITS/0.45ML SOLUTION FOR INJECTION PRE-FILLED
  18. FOSFOMYCIN [Concomitant]
     Active Substance: FOSFOMYCIN
     Dates: start: 20190120
  19. CODEINE [Concomitant]
     Active Substance: CODEINE
     Dosage: 30.0MG UNKNOWN
  20. LEVOTHYROXINE SODIUM. [Concomitant]
     Active Substance: LEVOTHYROXINE SODIUM
     Dosage: 50.0UG/INHAL UNKNOWN
  21. MORPHINE SULFATE. [Concomitant]
     Active Substance: MORPHINE SULFATE
     Dosage: 10MG/5ML
  22. LINEZOLID. [Concomitant]
     Active Substance: LINEZOLID
     Dates: start: 20190125, end: 20190130
  23. FLUCONAZOLE. [Suspect]
     Active Substance: FLUCONAZOLE
     Route: 065
  24. ONDANSETRON [Suspect]
     Active Substance: ONDANSETRON
     Route: 065
     Dates: start: 20190120, end: 20190131
  25. LEVOTHYROXINE SODIUM. [Concomitant]
     Active Substance: LEVOTHYROXINE SODIUM
     Dosage: 100.0UG/INHAL UNKNOWN
  26. IBUPROFEN. [Concomitant]
     Active Substance: IBUPROFEN
     Dosage: 400.0MG UNKNOWN

REACTIONS (1)
  - Electrocardiogram QT prolonged [Not Recovered/Not Resolved]
